FAERS Safety Report 4527141-2 (Version None)
Quarter: 2004Q4

REPORT INFORMATION
  Report Type: 
  Country: None (occurrence: None)
  Receive Date: 20041104
  Receipt Date: 20041021
  Transmission Date: 20050328
  Serious: Yes (Hospitalization)
  Sender: FDA-Public Use
  Company Number: 2004UW21944

PATIENT
  Age: 58 Year
  Sex: Female

DRUGS (4)
  1. CRESTOR [Suspect]
     Dosage: 40 MG PO
     Route: 048
  2. ZYPREXA [Concomitant]
  3. EFFEXOR [Concomitant]
  4. ANTIHYPERTENSIVE [Concomitant]

REACTIONS (1)
  - BLOOD CREATINE PHOSPHOKINASE INCREASED [None]
